FAERS Safety Report 5122883-2 (Version None)
Quarter: 2006Q4

REPORT INFORMATION
  Report Type: 
  Country: None (occurrence: None)
  Receive Date: 20061009
  Receipt Date: 20060830
  Transmission Date: 20070319
  Serious: Yes (Hospitalization)
  Sender: FDA-Public Use
  Company Number: 2006AP04060

PATIENT
  Age: 69 Year
  Sex: Female

DRUGS (4)
  1. ARIMIDEX [Suspect]
     Indication: BREAST CANCER
     Route: 048
     Dates: start: 20060401, end: 20060601
  2. TAMOXIFEN CITRATE [Concomitant]
     Indication: BREAST CANCER
  3. ADRIAMYCIN CHEMOTHERAPY [Concomitant]
     Dosage: FOUR COURSES
     Dates: start: 20020101, end: 20020101
  4. CYCLOPHOSPHAMIDE CHEMOTHERAPY [Concomitant]
     Dosage: FOUR COURSES
     Dates: start: 20020101, end: 20020101

REACTIONS (2)
  - CARDIAC FAILURE CONGESTIVE [None]
  - VENTRICULAR DYSFUNCTION [None]
